FAERS Safety Report 24056931 (Version 3)
Quarter: 2024Q4

REPORT INFORMATION
  Report Type: Spontaneous
  Country: JP (occurrence: JP)
  Receive Date: 20240706
  Receipt Date: 20241201
  Transmission Date: 20250115
  Serious: Yes (Death, Hospitalization, Disabling, Congenital Anomaly, Other)
  Sender: ROCHE
  Company Number: JP-CHUGAI-2024022192

PATIENT
  Sex: Female
  Weight: 1.33 kg

DRUGS (4)
  1. CELLCEPT [Suspect]
     Active Substance: MYCOPHENOLATE MOFETIL
     Indication: Product used for unknown indication
     Route: 064
  2. TELMISARTAN [Suspect]
     Active Substance: TELMISARTAN
     Indication: Product used for unknown indication
     Route: 064
  3. IBUPROFEN [Suspect]
     Active Substance: IBUPROFEN
     Indication: Product used for unknown indication
     Route: 064
  4. DOMPERIDONE [Suspect]
     Active Substance: DOMPERIDONE
     Indication: Product used for unknown indication
     Route: 064

REACTIONS (30)
  - Mayer-Rokitansky-Kuster-Hauser syndrome [Unknown]
  - Hepatic function abnormal [Fatal]
  - Gastrointestinal haemorrhage [Fatal]
  - Foetal exposure during pregnancy [Unknown]
  - Low birth weight baby [Unknown]
  - Neonatal respiratory distress [Unknown]
  - Premature baby [Unknown]
  - Micrognathia [Unknown]
  - Microphthalmos [Unknown]
  - Ear malformation [Unknown]
  - Tracheo-oesophageal fistula [Unknown]
  - Intraventricular haemorrhage [Unknown]
  - Hypoxic-ischaemic encephalopathy [Unknown]
  - Pterygium colli [Unknown]
  - Cleft palate [Unknown]
  - Congenital genital malformation [Unknown]
  - Congenital central nervous system anomaly [Unknown]
  - Vaginal hypoplasia [Unknown]
  - Uterine aplasia [Unknown]
  - Renal aplasia [Unknown]
  - Small for dates baby [Unknown]
  - Lung disorder [Fatal]
  - Patent ductus arteriosus [Fatal]
  - Renal fusion anomaly [Fatal]
  - Neck deformity [Unknown]
  - Rib deformity [Unknown]
  - Foetal growth restriction [Unknown]
  - Microcephaly [Unknown]
  - Oesophageal atresia [Fatal]
  - Teratogenicity [Unknown]
